FAERS Safety Report 5695186-5 (Version None)
Quarter: 2008Q2

REPORT INFORMATION
  Report Type: 
  Country: None (occurrence: None)
  Receive Date: 20080404
  Receipt Date: 20080325
  Transmission Date: 20081010
  Serious: Yes (Hospitalization)
  Sender: FDA-Public Use
  Company Number: AU-PFIZER INC-2008027153

PATIENT
  Sex: Male

DRUGS (6)
  1. LYRICA [Suspect]
  2. ATACAND [Concomitant]
  3. LUVOX [Concomitant]
  4. RANITIDINE [Concomitant]
  5. PRAVASTATIN [Concomitant]
  6. ENDEP [Concomitant]

REACTIONS (5)
  - HEART RATE INCREASED [None]
  - HYPERTENSION [None]
  - MALAISE [None]
  - MYOCARDIAL INFARCTION [None]
  - PALPITATIONS [None]
